FAERS Safety Report 24288672 (Version 1)
Quarter: 2024Q3

REPORT INFORMATION
  Report Type: Spontaneous
  Country: DE (occurrence: DE)
  Receive Date: 20240906
  Receipt Date: 20240906
  Transmission Date: 20241017
  Serious: Yes (Other)
  Sender: SANDOZ
  Company Number: DE-SZ09-PHHY2012DE085061

PATIENT
  Age: 80 Year
  Sex: Male

DRUGS (9)
  1. AZATHIOPRINE [Suspect]
     Active Substance: AZATHIOPRINE
     Indication: Myasthenia gravis
     Dosage: 40 MG, QD
     Route: 065
  2. HYDROCORTISONE [Suspect]
     Active Substance: HYDROCORTISONE\HYDROCORTISONE ACETATE
     Indication: Kaposi^s sarcoma
     Dosage: UNK
     Route: 065
  3. PREDNISOLONE [Suspect]
     Active Substance: PREDNISOLONE
     Dosage: 1 MG, QD
     Route: 065
  4. PREDNISOLONE [Suspect]
     Active Substance: PREDNISOLONE
     Indication: Myasthenia gravis
     Dosage: 5 MG, 1D (DAILY DOSE: 5 MG MILLIGRAM(S) EVERY DAY)
     Route: 065
  5. EVEROLIMUS [Concomitant]
     Active Substance: EVEROLIMUS
     Dosage: 0.5 MG, BID
     Route: 065
  6. EVEROLIMUS [Concomitant]
     Active Substance: EVEROLIMUS
     Dosage: 0.5 MG AT MORNING, 0.25 MG AT NIGHT
     Route: 065
  7. EVEROLIMUS [Concomitant]
     Active Substance: EVEROLIMUS
     Dosage: 0.5 MG AT MORNING, 0.25 MG AT NIGHT
     Route: 065
  8. EVEROLIMUS [Concomitant]
     Active Substance: EVEROLIMUS
     Dosage: 0.5 MG AT MORNING, 0.25 MG AT NIGHT
     Route: 065
  9. EVEROLIMUS [Concomitant]
     Active Substance: EVEROLIMUS
     Indication: Product used for unknown indication
     Dosage: 2 MG, QD
     Route: 065

REACTIONS (10)
  - Kaposi^s sarcoma [Recovered/Resolved]
  - Macule [Recovering/Resolving]
  - Skin lesion [Recovering/Resolving]
  - Skin mass [Recovering/Resolving]
  - Renal failure [Unknown]
  - Skin disorder [Unknown]
  - Immunosuppression [Unknown]
  - Antiacetylcholine receptor antibody positive [Recovering/Resolving]
  - Human herpesvirus 8 infection [Unknown]
  - Drug ineffective for unapproved indication [Unknown]

NARRATIVE: CASE EVENT DATE: 20080101
